FAERS Safety Report 15517428 (Version 1)
Quarter: 2018Q4

REPORT INFORMATION
  Report Type: Spontaneous
  Country: FR (occurrence: FR)
  Receive Date: 20181017
  Receipt Date: 20181017
  Transmission Date: 20190205
  Serious: Yes (Hospitalization)
  Sender: FDA-Public Use
  Company Number: FR-JNJFOC-20181013915

PATIENT
  Age: 92 Year
  Sex: Female
  Weight: 70 kg

DRUGS (6)
  1. XARELTO [Suspect]
     Active Substance: RIVAROXABAN
     Indication: POISONING DELIBERATE
     Route: 048
     Dates: start: 20180814, end: 20180814
  2. RISPERIDONE. [Suspect]
     Active Substance: RISPERIDONE
     Indication: POISONING DELIBERATE
     Route: 048
     Dates: start: 20180814, end: 20180814
  3. DEPAKOTE [Suspect]
     Active Substance: DIVALPROEX SODIUM
     Indication: POISONING DELIBERATE
     Route: 048
     Dates: start: 20180814, end: 20180814
  4. DOXYLAMINE SUCCINATE. [Suspect]
     Active Substance: DOXYLAMINE SUCCINATE
     Indication: POISONING DELIBERATE
     Route: 048
     Dates: start: 20180814, end: 20180814
  5. LASILIX [Suspect]
     Active Substance: FUROSEMIDE
     Indication: POISONING DELIBERATE
     Route: 048
     Dates: start: 20180814, end: 20180814
  6. HEMIGOXINE [Suspect]
     Active Substance: DIGOXIN
     Indication: POISONING DELIBERATE
     Route: 048
     Dates: start: 20180814, end: 20180814

REACTIONS (4)
  - Prothrombin time shortened [Recovered/Resolved]
  - Somnolence [Recovered/Resolved]
  - Acute kidney injury [Recovered/Resolved]
  - Hypotension [Recovered/Resolved]

NARRATIVE: CASE EVENT DATE: 20180814
